FAERS Safety Report 21642532 (Version 1)
Quarter: 2022Q4

REPORT INFORMATION
  Report Type: Spontaneous
  Country: DE (occurrence: DE)
  Receive Date: 20221125
  Receipt Date: 20221125
  Transmission Date: 20230112
  Serious: Yes (Other)
  Sender: FDA-Public Use
  Company Number: DE-AMGEN-DEUNI2022192785

PATIENT
  Age: 61 Year
  Sex: Male
  Weight: 100 kg

DRUGS (36)
  1. LEUCOVORIN [Suspect]
     Active Substance: LEUCOVORIN
     Indication: Colorectal cancer metastatic
     Dosage: 400 MILLIGRAM
     Route: 065
     Dates: start: 20200304
  2. LEUCOVORIN [Suspect]
     Active Substance: LEUCOVORIN
     Dosage: 800 MILLIGRAM
     Route: 065
     Dates: start: 20200319
  3. LEUCOVORIN [Suspect]
     Active Substance: LEUCOVORIN
     Dosage: 860 MILLIGRAM
     Route: 065
     Dates: start: 20200422
  4. LEUCOVORIN [Suspect]
     Active Substance: LEUCOVORIN
     Dosage: 800 MILLIGRAM
     Route: 065
     Dates: start: 20200520
  5. LEUCOVORIN [Suspect]
     Active Substance: LEUCOVORIN
     Dosage: 50 MILLIGRAM
     Route: 065
     Dates: start: 20210811
  6. IRINOTECAN [Suspect]
     Active Substance: IRINOTECAN
     Indication: Colorectal cancer metastatic
     Dosage: 360 MILLIGRAM
     Route: 065
     Dates: start: 20200304
  7. IRINOTECAN [Suspect]
     Active Substance: IRINOTECAN
     Dosage: 360 MILLIGRAM
     Route: 065
     Dates: start: 20210629
  8. IRINOTECAN [Suspect]
     Active Substance: IRINOTECAN
     Dosage: 385 MILLIGRAM
     Route: 065
     Dates: start: 20200422
  9. IRINOTECAN [Suspect]
     Active Substance: IRINOTECAN
     Dosage: 290 MILLIGRAM
     Route: 065
     Dates: start: 20220105
  10. IRINOTECAN [Suspect]
     Active Substance: IRINOTECAN
     Dosage: 355 MILLIGRAM
     Route: 065
     Dates: start: 20200520
  11. FLUOROURACIL [Suspect]
     Active Substance: FLUOROURACIL
     Indication: Colorectal cancer metastatic
     Dosage: 800 MILLIGRAM
     Route: 042
     Dates: start: 20200304
  12. FLUOROURACIL [Suspect]
     Active Substance: FLUOROURACIL
     Dosage: 1200 MILLIGRAM
     Route: 042
     Dates: start: 20200304
  13. FLUOROURACIL [Suspect]
     Active Substance: FLUOROURACIL
     Dosage: 4800 MILLIGRAM
     Route: 042
     Dates: start: 20200319
  14. FLUOROURACIL [Suspect]
     Active Substance: FLUOROURACIL
     Dosage: 5160 MILLIGRAM
     Route: 042
     Dates: start: 20200422
  15. FLUOROURACIL [Suspect]
     Active Substance: FLUOROURACIL
     Dosage: 860 MILLIGRAM
     Route: 042
     Dates: start: 20200506
  16. FLUOROURACIL [Suspect]
     Active Substance: FLUOROURACIL
     Dosage: 800 MILLIGRAM
     Route: 042
     Dates: start: 20200520
  17. FLUOROURACIL [Suspect]
     Active Substance: FLUOROURACIL
     Dosage: 4800 MILLIGRAM
     Route: 042
     Dates: start: 20200520
  18. PANITUMUMAB [Suspect]
     Active Substance: PANITUMUMAB
     Indication: Colorectal cancer metastatic
     Dosage: 265 MILLIGRAM
     Route: 042
     Dates: start: 20200701
  19. PANITUMUMAB [Suspect]
     Active Substance: PANITUMUMAB
     Dosage: 600 MILLIGRAM
     Dates: start: 20200520
  20. PANITUMUMAB [Suspect]
     Active Substance: PANITUMUMAB
     Dosage: 580 MILLIGRAM
     Route: 042
     Dates: start: 20200506
  21. PANITUMUMAB [Suspect]
     Active Substance: PANITUMUMAB
     Dosage: 580 MILLIGRAM
     Route: 042
     Dates: start: 20200319
  22. PANITUMUMAB [Suspect]
     Active Substance: PANITUMUMAB
     Dosage: 600 MILLIGRAM
     Route: 042
     Dates: start: 20200304
  23. PANITUMUMAB [Suspect]
     Active Substance: PANITUMUMAB
     Dosage: 600 MILLIGRAM
     Route: 042
     Dates: start: 20200422
  24. PANITUMUMAB [Suspect]
     Active Substance: PANITUMUMAB
     Dosage: 400 MILLIGRAM
     Route: 042
     Dates: start: 20200604
  25. PANITUMUMAB [Suspect]
     Active Substance: PANITUMUMAB
     Dosage: 270 MILLIGRAM
     Route: 042
     Dates: start: 20210106
  26. PANITUMUMAB [Suspect]
     Active Substance: PANITUMUMAB
     Dosage: 360 MILLIGRAM
     Route: 042
     Dates: start: 20211110
  27. PANITUMUMAB [Suspect]
     Active Substance: PANITUMUMAB
     Dosage: 360 MILLIGRAM
     Route: 042
     Dates: start: 20220119
  28. PANITUMUMAB [Suspect]
     Active Substance: PANITUMUMAB
     Dosage: 600 MILLIGRAM
     Route: 042
     Dates: start: 20210629
  29. PANITUMUMAB [Suspect]
     Active Substance: PANITUMUMAB
     Dosage: 360 MILLIGRAM
     Route: 042
     Dates: start: 20220413
  30. PANITUMUMAB [Suspect]
     Active Substance: PANITUMUMAB
     Dosage: 365 MILLIGRAM
     Route: 042
     Dates: start: 20220330
  31. PANITUMUMAB [Suspect]
     Active Substance: PANITUMUMAB
     Dosage: 365 MILLIGRAM
     Route: 042
     Dates: start: 20220105
  32. PANITUMUMAB [Suspect]
     Active Substance: PANITUMUMAB
     Dosage: 530 MILLIGRAM
     Route: 042
     Dates: start: 20210615
  33. PANITUMUMAB [Suspect]
     Active Substance: PANITUMUMAB
     Dosage: 480 MILLIGRAM
     Route: 042
     Dates: start: 20211013
  34. PANITUMUMAB [Suspect]
     Active Substance: PANITUMUMAB
     Dosage: 300 MILLIGRAM
     Route: 042
     Dates: start: 20210120
  35. ENOXAPARIN SODIUM [Concomitant]
     Active Substance: ENOXAPARIN SODIUM
     Indication: Pulmonary embolism
     Dosage: 80 MILLIGRAM, ONCE A DAY
     Route: 058
     Dates: start: 201907
  36. MINOCYCLIN-RATIOPHARM [Concomitant]
     Indication: Skin toxicity
     Dosage: 100 MILLIGRAM, ONCE A DAY (50 MILLIGRAM, BID)
     Route: 048
     Dates: start: 20200305

REACTIONS (1)
  - Pulmonary embolism [Recovering/Resolving]

NARRATIVE: CASE EVENT DATE: 20211210
